FAERS Safety Report 17258772 (Version 1)
Quarter: 2020Q1

REPORT INFORMATION
  Report Type: Report from Study
  Country: US (occurrence: US)
  Receive Date: 20200110
  Receipt Date: 20200110
  Transmission Date: 20200409
  Serious: Yes (Hospitalization, Other)
  Sender: FDA-Public Use
  Company Number: US-GILEAD-2020-0446160

PATIENT
  Age: 17 Year
  Sex: Female

DRUGS (31)
  1. PULMICORT TURBUHALER [Concomitant]
     Active Substance: BUDESONIDE
  2. CETIRIZINE [Concomitant]
     Active Substance: CETIRIZINE HYDROCHLORIDE
  3. ALBUTEROL [SALBUTAMOL] [Concomitant]
     Active Substance: ALBUTEROL
  4. OMEPRAZOLE. [Concomitant]
     Active Substance: OMEPRAZOLE
  5. PREDNISONE. [Concomitant]
     Active Substance: PREDNISONE
  6. CALCITRIOL. [Concomitant]
     Active Substance: CALCITRIOL
  7. PULMOZYME [Concomitant]
     Active Substance: DORNASE ALFA
  8. FOSAMAX [Concomitant]
     Active Substance: ALENDRONATE SODIUM
  9. SODIUM CHLORIDE. [Concomitant]
     Active Substance: SODIUM CHLORIDE
  10. ZYRTEC [Concomitant]
     Active Substance: CETIRIZINE HYDROCHLORIDE
  11. GAMMAGARD [Concomitant]
     Active Substance: HUMAN IMMUNOGLOBULIN G
  12. CYPROHEPTADINE. [Concomitant]
     Active Substance: CYPROHEPTADINE
  13. NYSTATIN. [Concomitant]
     Active Substance: NYSTATIN
  14. ZANTAC [Concomitant]
     Active Substance: RANITIDINE HYDROCHLORIDE
  15. STELARA [Concomitant]
     Active Substance: USTEKINUMAB
  16. TOBRAMYCIN. [Concomitant]
     Active Substance: TOBRAMYCIN
  17. SWEEN [Concomitant]
  18. PROCARDIA [Concomitant]
     Active Substance: NIFEDIPINE
  19. HYDROCORT [HYDROCORTISONE ACETATE] [Concomitant]
  20. NORDITROPIN [Concomitant]
     Active Substance: SOMATROPIN
  21. CARNITOR [Concomitant]
     Active Substance: LEVOCARNITINE
  22. AZTREONAM LYSINE [Suspect]
     Active Substance: AZTREONAM LYSINE
     Indication: CYSTIC FIBROSIS
     Dosage: 75 MG, TID
     Route: 055
     Dates: start: 20180301
  23. PRILOSEC [Concomitant]
     Active Substance: OMEPRAZOLE MAGNESIUM
  24. TYLENOL A [Concomitant]
     Active Substance: ACETAMINOPHEN
  25. METFORMIN [Concomitant]
     Active Substance: METFORMIN HYDROCHLORIDE
  26. NIFEDIPINE. [Concomitant]
     Active Substance: NIFEDIPINE
  27. MUPIROCIN. [Concomitant]
     Active Substance: MUPIROCIN
  28. FLONASE [MOMETASONE FUROATE] [Concomitant]
     Active Substance: MOMETASONE FUROATE
  29. ALPHA LIPOIC ACID [Concomitant]
     Active Substance: .ALPHA.-LIPOIC ACID
  30. HYDROCHLOROTHIAZIDE. [Concomitant]
     Active Substance: HYDROCHLOROTHIAZIDE
  31. IPRATROPIUM [Concomitant]
     Active Substance: IPRATROPIUM

REACTIONS (1)
  - Pneumonia [Unknown]

NARRATIVE: CASE EVENT DATE: 20191212
